FAERS Safety Report 20486816 (Version 3)
Quarter: 2022Q4

REPORT INFORMATION
  Report Type: Spontaneous
  Country: US (occurrence: US)
  Receive Date: 20220217
  Receipt Date: 20221014
  Transmission Date: 20230113
  Serious: Yes (Other)
  Sender: FDA-Public Use
  Company Number: US-GILEAD-2022-0569364

PATIENT
  Age: 62 Year
  Sex: Male
  Weight: 79.365 kg

DRUGS (33)
  1. ATRIPLA [Suspect]
     Active Substance: EFAVIRENZ\EMTRICITABINE\TENOFOVIR DISOPROXIL FUMARATE
     Indication: HIV infection
     Dosage: UNK
     Route: 048
     Dates: start: 2004
  2. ATRIPLA [Suspect]
     Active Substance: EFAVIRENZ\EMTRICITABINE\TENOFOVIR DISOPROXIL FUMARATE
     Dosage: UNK
     Route: 065
     Dates: start: 2006, end: 202010
  3. TRUVADA [Suspect]
     Active Substance: EMTRICITABINE\TENOFOVIR DISOPROXIL FUMARATE
     Indication: HIV infection
     Dosage: UNK
     Route: 048
     Dates: start: 200408, end: 201802
  4. BIKTARVY [Concomitant]
     Active Substance: BICTEGRAVIR SODIUM\EMTRICITABINE\TENOFOVIR ALAFENAMIDE FUMARATE
  5. DESCOVY [Concomitant]
     Active Substance: EMTRICITABINE\TENOFOVIR ALAFENAMIDE FUMARATE
  6. CRIXIVAN [Concomitant]
     Active Substance: INDINAVIR SULFATE
  7. JULUCA [Concomitant]
     Active Substance: DOLUTEGRAVIR SODIUM\RILPIVIRINE HYDROCHLORIDE
  8. TIVICAY [Concomitant]
     Active Substance: DOLUTEGRAVIR SODIUM
  9. TRIUMEQ [Concomitant]
     Active Substance: ABACAVIR SULFATE\DOLUTEGRAVIR SODIUM\LAMIVUDINE
  10. ZIAGEN [Concomitant]
     Active Substance: ABACAVIR SULFATE
  11. AZT [Concomitant]
     Active Substance: ZIDOVUDINE
  12. ABACAVIR [Concomitant]
     Active Substance: ABACAVIR
  13. XANAX [Concomitant]
     Active Substance: ALPRAZOLAM
  14. AMOXICILLIN [Concomitant]
     Active Substance: AMOXICILLIN
  15. ATORVASTATIN [Concomitant]
     Active Substance: ATORVASTATIN
  16. PLAVIX [Concomitant]
     Active Substance: CLOPIDOGREL BISULFATE
  17. LISINOPRIL [Concomitant]
     Active Substance: LISINOPRIL
  18. VALACYCLOVIR HYDROCHLORIDE [Concomitant]
     Active Substance: VALACYCLOVIR HYDROCHLORIDE
  19. CIPROFLOXACIN [Concomitant]
     Active Substance: CIPROFLOXACIN
  20. AZITHROMYCIN [Concomitant]
     Active Substance: AZITHROMYCIN
  21. INDOMETHACIN SODIUM [Concomitant]
     Active Substance: INDOMETHACIN SODIUM
  22. OXYCODONE [Concomitant]
     Active Substance: OXYCODONE
  23. PREDNISONE [Concomitant]
     Active Substance: PREDNISONE
  24. CYCLOBENZAPRINE [Concomitant]
     Active Substance: CYCLOBENZAPRINE
  25. MECLIZINE HYDROCHLORIDE [Concomitant]
     Active Substance: MECLIZINE HYDROCHLORIDE
  26. METOPROLOL [Concomitant]
     Active Substance: METOPROLOL
  27. .ALPHA.-TOCOPHEROL ACETATE, D-\EVENING PRIMROSE OIL\FISH OIL [Concomitant]
     Active Substance: .ALPHA.-TOCOPHEROL ACETATE, D-\EVENING PRIMROSE OIL\FISH OIL
  28. SIMVASTATIN [Concomitant]
     Active Substance: SIMVASTATIN
  29. ATIVAN [Concomitant]
     Active Substance: LORAZEPAM
  30. PROBIOTICS NOS [Concomitant]
     Active Substance: PROBIOTICS NOS
  31. LORATADINE [Concomitant]
     Active Substance: LORATADINE
  32. DOCUSATE SODIUM [Concomitant]
     Active Substance: DOCUSATE SODIUM
  33. ASCORBIC ACID [Concomitant]
     Active Substance: ASCORBIC ACID

REACTIONS (21)
  - Chronic kidney disease [Not Recovered/Not Resolved]
  - Lipodystrophy acquired [Unknown]
  - Emotional distress [Not Recovered/Not Resolved]
  - Anhedonia [Unknown]
  - Blood creatinine increased [Not Recovered/Not Resolved]
  - Anxiety [Unknown]
  - Pain [Not Recovered/Not Resolved]
  - Osteopenia [Not Recovered/Not Resolved]
  - Foot fracture [Recovered/Resolved]
  - Back pain [Not Recovered/Not Resolved]
  - Synovial cyst [Not Recovered/Not Resolved]
  - Balance disorder [Not Recovered/Not Resolved]
  - Joint swelling [Not Recovered/Not Resolved]
  - Sleep disorder [Not Recovered/Not Resolved]
  - Musculoskeletal stiffness [Not Recovered/Not Resolved]
  - Ligament rupture [Not Recovered/Not Resolved]
  - Insomnia [Not Recovered/Not Resolved]
  - Gait disturbance [Not Recovered/Not Resolved]
  - Feeling of despair [Not Recovered/Not Resolved]
  - Arthropathy [Not Recovered/Not Resolved]
  - Weight bearing difficulty [Not Recovered/Not Resolved]

NARRATIVE: CASE EVENT DATE: 20170101
